FAERS Safety Report 21253553 (Version 1)
Quarter: 2022Q3

REPORT INFORMATION
  Report Type: Spontaneous
  Country: IL (occurrence: IL)
  Receive Date: 20220825
  Receipt Date: 20220825
  Transmission Date: 20221027
  Serious: Yes (Hospitalization, Other)
  Sender: FDA-Public Use
  Company Number: IL-BIOVITRUM-2022IL09666

PATIENT
  Age: 24 Year
  Sex: Male
  Weight: 110 kg

DRUGS (2)
  1. ANAKINRA [Suspect]
     Active Substance: ANAKINRA
     Indication: Haemophagocytic lymphohistiocytosis
  2. ANAKINRA [Suspect]
     Active Substance: ANAKINRA
     Indication: Still^s disease

REACTIONS (14)
  - Condition aggravated [Unknown]
  - Pyrexia [Recovering/Resolving]
  - Cytopenia [Unknown]
  - Hyperbilirubinaemia [Unknown]
  - Serum ferritin increased [Unknown]
  - Hypofibrinogenaemia [Unknown]
  - Anaemia [Unknown]
  - White blood cell count decreased [Unknown]
  - Hepatic failure [Unknown]
  - Rash [Recovering/Resolving]
  - Alanine aminotransferase increased [Unknown]
  - Thrombocytopenia [Unknown]
  - Neutrophil count decreased [Unknown]
  - Off label use [Unknown]
